FAERS Safety Report 24073054 (Version 3)
Quarter: 2024Q3

REPORT INFORMATION
  Report Type: Report from Study
  Country: US (occurrence: US)
  Receive Date: 20240710
  Receipt Date: 20240819
  Transmission Date: 20241016
  Serious: Yes (Other)
  Sender: UCB
  Company Number: US-UCBSA-2024026884

PATIENT
  Sex: Female

DRUGS (2)
  1. ROZANOLIXIZUMAB [Suspect]
     Active Substance: ROZANOLIXIZUMAB
     Indication: Myasthenia gravis
     Dosage: 560 MILLIGRAM, WEEKLY (QW) FOR 6 WEEKS
     Route: 058
     Dates: start: 20240404, end: 2024
  2. ROZANOLIXIZUMAB [Suspect]
     Active Substance: ROZANOLIXIZUMAB
     Dosage: 560 MILLIGRAM, WEEKLY (QW) (560 MG (4 ML) VIA SUBCUTANEOUS INFUSION ONCE WEEKLY FOR 6 WEEKS)
     Route: 058
     Dates: start: 20240626

REACTIONS (8)
  - Loss of consciousness [Recovered/Resolved]
  - Injection site rash [Recovering/Resolving]
  - Urinary tract infection [Recovered/Resolved]
  - Infusion site pain [Recovered/Resolved]
  - Arthralgia [Recovered/Resolved]
  - Pain in extremity [Recovered/Resolved]
  - Myalgia [Recovered/Resolved]
  - Blood immunoglobulin G increased [Recovered/Resolved]

NARRATIVE: CASE EVENT DATE: 20240101
